FAERS Safety Report 6521196-1 (Version None)
Quarter: 2009Q4

REPORT INFORMATION
  Report Type: 
  Country: None (occurrence: None)
  Receive Date: 20091222
  Receipt Date: 20091210
  Transmission Date: 20100525
  Serious: Yes (Other)
  Sender: FDA-Public Use
  Company Number: 234370J09USA

PATIENT
  Age: 27 Year
  Sex: Male

DRUGS (3)
  1. REBIF [Suspect]
     Indication: MULTIPLE SCLEROSIS
     Dosage: 8.8 MCG, 3 IN 1 WEEKS, SUBCUTANOUS
     Route: 058
     Dates: start: 20091201
  2. LISINOPRIL [Concomitant]
  3. IBUPROFEN [Concomitant]

REACTIONS (6)
  - ASTHENIA [None]
  - DISEASE RECURRENCE [None]
  - HEADACHE [None]
  - NAUSEA [None]
  - OPTIC NEURITIS [None]
  - PAIN IN EXTREMITY [None]
